FAERS Safety Report 5840769-2 (Version None)
Quarter: 2008Q3

REPORT INFORMATION
  Report Type: 
  Country: None (occurrence: None)
  Receive Date: 20080731
  Receipt Date: 20080602
  Transmission Date: 20090109
  Serious: No
  Sender: FDA-Public Use
  Company Number: US200805001632

PATIENT
  Age: 71 Year
  Sex: Male
  Weight: 88.9 kg

DRUGS (10)
  1. BYETTA [Suspect]
     Indication: TYPE 2 DIABETES MELLITUS
     Dosage: 5 UG, 2/D, SUBCUTANEOUS; 10 UG, 2/D, SUBCUTANEOUS; 20 UG, SUBCUTANEOUS
     Route: 058
     Dates: start: 20080101, end: 20080101
  2. BYETTA [Suspect]
     Indication: TYPE 2 DIABETES MELLITUS
     Dosage: 5 UG, 2/D, SUBCUTANEOUS; 10 UG, 2/D, SUBCUTANEOUS; 20 UG, SUBCUTANEOUS
     Route: 058
     Dates: start: 20080602, end: 20080602
  3. BYETTA [Suspect]
     Indication: TYPE 2 DIABETES MELLITUS
     Dosage: 5 UG, 2/D, SUBCUTANEOUS; 10 UG, 2/D, SUBCUTANEOUS; 20 UG, SUBCUTANEOUS
     Route: 058
     Dates: start: 20080501
  4. EXENATIDE 5MCG PEN, DISPOSABLE DEVICE (EXENATIDE PEN (5MCG)) PEN,DISPO [Concomitant]
  5. EXENATIDE 10MCG PEN, DISPOSABLE DEVICE (EXENATIDE PEN (10MCG)) PEN,DIS [Concomitant]
  6. EXENATIDE 10MCG PEN, DISPOSABLE DEVICE (EXENATIDE PEN (10MCG)) PEN,DIS [Concomitant]
  7. METFORMIN HCL [Concomitant]
  8. CALCIUM (CALCIUM) [Concomitant]
  9. VITAMIN TAB [Concomitant]
  10. ASPIRIN [Concomitant]

REACTIONS (15)
  - ACCIDENTAL NEEDLE STICK [None]
  - ACCIDENTAL OVERDOSE [None]
  - CONFUSIONAL STATE [None]
  - DIZZINESS [None]
  - HEADACHE [None]
  - INCORRECT DOSE ADMINISTERED [None]
  - INCREASED APPETITE [None]
  - NAUSEA [None]
  - PUNCTURE SITE HAEMORRHAGE [None]
  - RETCHING [None]
  - STOMACH DISCOMFORT [None]
  - SWELLING [None]
  - URINE OUTPUT INCREASED [None]
  - VOMITING [None]
  - WEIGHT INCREASED [None]
